FAERS Safety Report 5035289-1 (Version None)
Quarter: 2006Q2

REPORT INFORMATION
  Report Type: 
  Country: None (occurrence: None)
  Receive Date: 20060627
  Receipt Date: 20030715
  Transmission Date: 20061013
  Serious: Yes (Hospitalization)
  Sender: FDA-Public Use
  Company Number: DE-BRISTOL-MYERS SQUIBB COMPANY-12325338

PATIENT
  Age: 71 Year
  Sex: Female

DRUGS (4)
  1. IRBESARTAN [Suspect]
     Indication: CARDIAC FAILURE
     Dosage: 15-28APR03: 75 MG DAILY; 29APR-05MAY03: 150 MG DAILY; 06MAY03-CONT: 300 MG DAILY
     Route: 048
     Dates: start: 20030506
  2. AMIODARONE HCL [Concomitant]
     Dates: start: 20030502
  3. METOPROLOL TARTRATE [Concomitant]
     Dates: start: 20030430
  4. TORSEMIDE [Concomitant]
     Dates: start: 20030505

REACTIONS (1)
  - ATRIAL FIBRILLATION [None]
